FAERS Safety Report 14310788 (Version 1)
Quarter: 2017Q4

REPORT INFORMATION
  Report Type: Spontaneous
  Country: GB (occurrence: GB)
  Receive Date: 20171220
  Receipt Date: 20171220
  Transmission Date: 20180321
  Serious: Yes (Hospitalization)
  Sender: FDA-Public Use
  Company Number: GB-MERCK KGAA-2037505

PATIENT
  Age: 81 Year
  Sex: Female

DRUGS (14)
  1. FUROSEMIDE. [Suspect]
     Active Substance: FUROSEMIDE
     Route: 065
  2. CIPROFLOXACIN. [Suspect]
     Active Substance: CIPROFLOXACIN
  3. HEPARIN [Suspect]
     Active Substance: HEPARIN SODIUM
     Route: 065
  4. CARVEDILOL. [Suspect]
     Active Substance: CARVEDILOL
     Route: 065
  5. PANTOPRAZOLE [Suspect]
     Active Substance: PANTOPRAZOLE
     Route: 065
  6. NOVOTHYROX [Suspect]
     Active Substance: LEVOTHYROXINE SODIUM
     Indication: PRODUCT USED FOR UNKNOWN INDICATION
     Route: 065
  7. CARVEDILOL. [Suspect]
     Active Substance: CARVEDILOL
     Route: 065
  8. ENCORTON [Suspect]
     Active Substance: PREDNISONE
     Route: 065
  9. RIVAROXABAN [Suspect]
     Active Substance: RIVAROXABAN
     Route: 065
  10. AMIODARONE [Suspect]
     Active Substance: AMIODARONE
     Route: 065
  11. CALCIUM [Concomitant]
     Active Substance: CALCIUM
     Route: 065
  12. VITAMIN D [Concomitant]
     Active Substance: CHOLECALCIFEROL
  13. ENCORTON [Suspect]
     Active Substance: PREDNISONE
     Route: 065
  14. ENCORTON [Suspect]
     Active Substance: PREDNISONE
     Route: 065

REACTIONS (11)
  - Palpitations [Unknown]
  - Atrial fibrillation [Unknown]
  - Dyspnoea [Unknown]
  - Oliguria [Unknown]
  - Cough [Unknown]
  - Oedema peripheral [Unknown]
  - Pneumonia [Unknown]
  - Fatigue [Unknown]
  - Exercise tolerance decreased [Unknown]
  - Pulmonary toxicity [Recovered/Resolved]
  - Diarrhoea [Recovering/Resolving]
